FAERS Safety Report 22115019 (Version 1)
Quarter: 2023Q1

REPORT INFORMATION
  Report Type: Spontaneous
  Country: US (occurrence: None)
  Receive Date: 20230320
  Receipt Date: 20230320
  Transmission Date: 20230418
  Serious: Yes (Life-Threatening, Other)
  Sender: FDA-Public Use
  Company Number: 2023A063135

PATIENT
  Sex: Female

DRUGS (1)
  1. ROSUVASTATIN CALCIUM [Suspect]
     Active Substance: ROSUVASTATIN CALCIUM
     Route: 048

REACTIONS (7)
  - Feeding disorder [Unknown]
  - Toxicity to various agents [Unknown]
  - Muscular weakness [Unknown]
  - Decreased activity [Unknown]
  - Biopsy [Unknown]
  - Impaired driving ability [Unknown]
  - Pneumonia [Unknown]
